FAERS Safety Report 4838481-1 (Version None)
Quarter: 2005Q4

REPORT INFORMATION
  Report Type: 
  Country: None (occurrence: None)
  Receive Date: 20051123
  Receipt Date: 20041008
  Transmission Date: 20060501
  Serious: Yes (Other)
  Sender: FDA-Public Use
  Company Number: 2005BH002976

PATIENT
  Sex: Female

DRUGS (1)
  1. LACTATED RINGERS INJECTIN IN PLAST CONTAINER (LACTATED FINGERS) [Suspect]
     Dosage: 1000 ML;ONCE;IV
     Route: 042
     Dates: start: 20041006, end: 20041006

REACTIONS (4)
  - DRUG EXPOSURE DURING PREGNANCY [None]
  - INFUSION RELATED REACTION [None]
  - PRURITUS [None]
  - RASH [None]
